FAERS Safety Report 8750329 (Version 2)
Quarter: 2012Q4

REPORT INFORMATION
  Report Type: 
  Country: US (occurrence: None)
  Receive Date: 20120809
  Receipt Date: 20120814
  Transmission Date: 20130627
  Serious: Yes (Hospitalization, Other)
  Sender: FDA-Public Use
  Company Number: 2012AP002303

PATIENT
  Age: 9 Year
  Sex: Male

DRUGS (5)
  1. CARBIDOPA AND LEVODOPA [Suspect]
     Indication: DYSTONIA
  2. CARBIDOPA AND LEVODOPA [Suspect]
     Indication: OFF LABEL USE
  3. TRIHEXYPHENIDYL HYDROCHLORIDE [Concomitant]
  4. BACLOFEN [Concomitant]
  5. CLONAZEPAM [Concomitant]

REACTIONS (8)
  - Neuroleptic malignant syndrome [None]
  - Ileus [None]
  - Agitation [None]
  - Transaminases increased [None]
  - Off label use [None]
  - Respiratory distress [None]
  - Dehydration [None]
  - On and off phenomenon [None]
